FAERS Safety Report 24539174 (Version 1)
Quarter: 2024Q4

REPORT INFORMATION
  Report Type: Spontaneous
  Country: US (occurrence: US)
  Receive Date: 20241023
  Receipt Date: 20241023
  Transmission Date: 20250115
  Serious: Yes (Death, Life-Threatening, Hospitalization, Other)
  Sender: SANDOZ
  Company Number: US-002147023-NVSC2019US071101

PATIENT
  Age: 61 Year
  Sex: Female

DRUGS (8)
  1. MYCOPHENOLATE MOFETIL [Suspect]
     Active Substance: MYCOPHENOLATE MOFETIL
     Indication: Liver transplant
     Route: 065
  2. MYCOPHENOLATE MOFETIL [Suspect]
     Active Substance: MYCOPHENOLATE MOFETIL
     Indication: Immunosuppressant drug therapy
  3. PREDNISONE [Suspect]
     Active Substance: PREDNISONE
     Indication: Immunosuppressant drug therapy
     Route: 065
  4. PREDNISONE [Suspect]
     Active Substance: PREDNISONE
     Indication: Liver transplant
  5. TACROLIMUS [Suspect]
     Active Substance: TACROLIMUS
     Indication: Immunosuppressant drug therapy
     Route: 065
  6. TACROLIMUS [Suspect]
     Active Substance: TACROLIMUS
     Indication: Liver transplant
  7. ACYCLOVIR [Concomitant]
     Active Substance: ACYCLOVIR
     Indication: Prophylaxis
     Dosage: 400 MG, BID
     Route: 042
  8. SULFAMETHOXAZOLE\TRIMETHOPRIM [Concomitant]
     Active Substance: SULFAMETHOXAZOLE\TRIMETHOPRIM
     Indication: Prophylaxis
     Dosage: UNK, Q3W
     Route: 065

REACTIONS (24)
  - Toxoplasmosis [Fatal]
  - Encephalitis cytomegalovirus [Fatal]
  - Toxoplasmosis [Fatal]
  - Cholestasis [Fatal]
  - Hepatic necrosis [Fatal]
  - Klebsiella infection [Fatal]
  - Abdominal wall infection [Fatal]
  - Clostridium difficile colitis [Fatal]
  - Abdominal wall abscess [Fatal]
  - Enterococcal infection [Fatal]
  - Cytomegalovirus infection [Fatal]
  - Small intestinal obstruction [Unknown]
  - Sepsis syndrome [Fatal]
  - Pleural effusion [Fatal]
  - Subarachnoid haemorrhage [Unknown]
  - Diarrhoea [Recovered/Resolved]
  - Atelectasis [Unknown]
  - Respiratory failure [Unknown]
  - Hypotension [Unknown]
  - Sepsis [Unknown]
  - Tremor [Unknown]
  - Confusional state [Unknown]
  - Pyrexia [Unknown]
  - Product use in unapproved indication [Unknown]
